FAERS Safety Report 8993265 (Version 1)
Quarter: 2013Q1

REPORT INFORMATION
  Report Type: Spontaneous
  Country: US (occurrence: US)
  Receive Date: 20130102
  Receipt Date: 20130102
  Transmission Date: 20140127
  Serious: Yes (Other)
  Sender: FDA-Public Use
  Company Number: US-PFIZER INC-2012332885

PATIENT
  Age: 5 Year
  Sex: Female

DRUGS (1)
  1. ADVIL LIQUIGEL [Suspect]

REACTIONS (3)
  - Palpitations [Unknown]
  - Vomiting [Unknown]
  - Accidental exposure to product by child [Unknown]
